FAERS Safety Report 24079065 (Version 4)
Quarter: 2024Q4

REPORT INFORMATION
  Report Type: Spontaneous
  Country: GR (occurrence: GR)
  Receive Date: 20240711
  Receipt Date: 20241129
  Transmission Date: 20250115
  Serious: Yes (Death)
  Sender: NOVARTIS
  Company Number: GR-002147023-NVSC2024GR142711

PATIENT

DRUGS (1)
  1. PLUVICTO [Suspect]
     Active Substance: LUTETIUM LU-177 VIPIVOTIDE TETRAXETAN
     Indication: Product used for unknown indication
     Dosage: UNK
     Route: 065
     Dates: start: 20240607

REACTIONS (4)
  - Hepatotoxicity [Fatal]
  - Multiple organ dysfunction syndrome [Fatal]
  - Hepatic failure [Fatal]
  - Disease progression [Fatal]
